FAERS Safety Report 8587145-X (Version None)
Quarter: 2012Q3

REPORT INFORMATION
  Report Type: 
  Country: None (occurrence: None)
  Receive Date: 20120810
  Receipt Date: 20120803
  Transmission Date: 20120928
  Serious: Yes (Hospitalization)
  Sender: FDA-Public Use
  Company Number: US-ABBOTT-12P-163-0964354-00

PATIENT
  Sex: Male
  Weight: 45.4 kg

DRUGS (2)
  1. HUMIRA [Suspect]
     Dates: start: 20120712
  2. HUMIRA [Suspect]
     Indication: CROHN'S DISEASE
     Dates: start: 20120628, end: 20120628

REACTIONS (7)
  - NAUSEA [None]
  - VOMITING [None]
  - ABDOMINAL PAIN [None]
  - MEDICATION ERROR [None]
  - SMALL INTESTINAL OBSTRUCTION [None]
  - CROHN'S DISEASE [None]
  - INSOMNIA [None]
